FAERS Safety Report 7761851-9 (Version None)
Quarter: 2011Q3

REPORT INFORMATION
  Report Type: 
  Country: None (occurrence: None)
  Receive Date: 20110915
  Receipt Date: 20110901
  Transmission Date: 20111222
  Serious: Yes (Other)
  Sender: FDA-Public Use
  Company Number: EU-2011-10163

PATIENT
  Age: 72 Year
  Sex: Male

DRUGS (1)
  1. PLETAL [Suspect]
     Indication: ANGIOPLASTY
     Dosage: 100 MG MILLIGRAM(S), BID, ORAL
     Route: 048
     Dates: start: 20100211, end: 20100601

REACTIONS (4)
  - CHEST PAIN [None]
  - BACK PAIN [None]
  - HEADACHE [None]
  - MUSCULOSKELETAL PAIN [None]
